FAERS Safety Report 7546794-8 (Version None)
Quarter: 2011Q2

REPORT INFORMATION
  Report Type: 
  Country: None (occurrence: None)
  Receive Date: 20110614
  Receipt Date: 20110531
  Transmission Date: 20111010
  Serious: Yes (Other)
  Sender: FDA-Public Use
  Company Number: US-JNJFOC-20110512940

PATIENT
  Sex: Female

DRUGS (4)
  1. ENALAPRIL MALEATE [Concomitant]
     Route: 048
  2. REMICADE [Suspect]
     Indication: CROHN'S DISEASE
     Route: 042
     Dates: start: 20090101, end: 20110501
  3. LIALDA [Concomitant]
     Indication: CROHN'S DISEASE
     Route: 048
  4. ENALAPRIL MALEATE [Concomitant]
     Indication: HYPERTENSION
     Route: 048

REACTIONS (8)
  - PAIN IN EXTREMITY [None]
  - RHINORRHOEA [None]
  - SKIN ULCER [None]
  - WEIGHT DECREASED [None]
  - PROTEINURIA [None]
  - FATIGUE [None]
  - BLOOD PRESSURE SYSTOLIC INCREASED [None]
  - RASH ERYTHEMATOUS [None]
